FAERS Safety Report 18811901 (Version 4)
Quarter: 2021Q1

REPORT INFORMATION
  Report Type: Spontaneous
  Country: AU (occurrence: AU)
  Receive Date: 20210130
  Receipt Date: 20210326
  Transmission Date: 20210419
  Serious: Yes (Hospitalization, Other)
  Sender: FDA-Public Use
  Company Number: AU-SA-2020SA151181

PATIENT
  Age: 69 Year
  Sex: Male

DRUGS (9)
  1. ACETYLSALICYLIC ACID [Suspect]
     Active Substance: ASPIRIN
     Dosage: 100 MG, QD
     Route: 065
  2. EUTROXSIG [Concomitant]
     Active Substance: LEVOTHYROXINE SODIUM
  3. INSULIN [Concomitant]
     Active Substance: INSULIN NOS
  4. OPTIRAY [Suspect]
     Active Substance: IOVERSOL
  5. VITAMIN C [Concomitant]
     Active Substance: ASCORBIC ACID
     Dosage: UNK
  6. FISH OIL [Concomitant]
     Active Substance: FISH OIL
     Dosage: UNK
  7. PLAVIX [Suspect]
     Active Substance: CLOPIDOGREL BISULFATE
     Indication: MYOCARDIAL INFARCTION
     Dosage: 75 MG, QD
     Dates: start: 2006
  8. COENZYME Q10 [Concomitant]
     Active Substance: DIETARY SUPPLEMENT\UBIDECARENONE
     Route: 065
  9. PLAVIX [Suspect]
     Active Substance: CLOPIDOGREL BISULFATE
     Indication: CORONARY ARTERY DISEASE
     Dosage: 1 DF
     Route: 065

REACTIONS (7)
  - Intestinal haemorrhage [Recovered/Resolved]
  - Scar [Unknown]
  - Obstruction [Unknown]
  - Malaise [Unknown]
  - Haemorrhage [Unknown]
  - Contusion [Recovered/Resolved]
  - Haematochezia [Unknown]

NARRATIVE: CASE EVENT DATE: 2020
